FAERS Safety Report 9040677 (Version 1)
Quarter: 2013Q1

REPORT INFORMATION
  Report Type: Report from Study
  Country: US (occurrence: US)
  Receive Date: 20130129
  Receipt Date: 20130129
  Transmission Date: 20140127
  Serious: No
  Sender: FDA-Public Use
  Company Number: US-ABBOTT-12P-163-0893642-00

PATIENT
  Age: 48 Year
  Sex: Male

DRUGS (3)
  1. HUMIRA 40 MG/0.8 ML PEN [Suspect]
     Indication: PSORIASIS
     Dates: start: 20111014, end: 20120113
  2. DISTOLIC [Concomitant]
     Indication: BLOOD PRESSURE
  3. LOSARTAN-HCTZ [Concomitant]
     Indication: BLOOD PRESSURE
     Dosage: 100/25 MG DAILY

REACTIONS (2)
  - Infection [Not Recovered/Not Resolved]
  - Pain [Not Recovered/Not Resolved]
